FAERS Safety Report 4984292-6 (Version None)
Quarter: 2006Q2

REPORT INFORMATION
  Report Type: 
  Country: None (occurrence: None)
  Receive Date: 20060427
  Receipt Date: 20051130
  Transmission Date: 20061013
  Serious: Yes (Hospitalization, Other)
  Sender: FDA-Public Use
  Company Number: PHEH2005US13064

PATIENT
  Age: 87 Year
  Sex: Female

DRUGS (18)
  1. ZOMETA [Suspect]
     Indication: MULTIPLE MYELOMA
     Dosage: 4 MG, QMO
     Dates: start: 20050405, end: 20050615
  2. LISINOPRIL [Concomitant]
     Dosage: 10 MG, QD
  3. MIRAPEX [Concomitant]
     Dosage: 0.25 MG, QD
  4. HUMULIN 70/30 [Concomitant]
     Dosage: 24 UNITS QAM/ 8 UNITS QPM
  5. AMLODIPINE [Concomitant]
     Dosage: 10 MG, QD
  6. TOPROL-XL [Concomitant]
     Dosage: 50 MG, QD
  7. PROTONIX [Concomitant]
     Dosage: 40 MG, BID
  8. LASIX [Concomitant]
     Dosage: 60MG QAM/ 40MG QPM
  9. IMDUR [Concomitant]
     Dosage: 15 MG, QD
  10. MIRALAX [Concomitant]
     Dosage: 17 G, QD
  11. COLACE [Concomitant]
     Dosage: 100 MG, BID
  12. MULTIVITAMIN [Concomitant]
     Dosage: 1 TAB QD
  13. PREDNISONE TAB [Concomitant]
     Dosage: 60 MG, QD
     Dates: start: 20040921
  14. CYTOXAN [Concomitant]
     Dosage: 159 MG/M2, UNK
     Dates: start: 20040921
  15. CYTOXAN [Concomitant]
     Dosage: 200 MG/M2, UNK
     Dates: start: 20041019
  16. ARANESP [Suspect]
  17. AREDIA [Suspect]
     Indication: MULTIPLE MYELOMA
     Dosage: 90 MG, QMO
     Dates: start: 20040921, end: 20050308
  18. AREDIA [Suspect]
     Dosage: 90 MG, QMO
     Dates: start: 20050727, end: 20060322

REACTIONS (20)
  - BACK PAIN [None]
  - BLOOD CREATININE INCREASED [None]
  - BLOOD UREA INCREASED [None]
  - BONE DISORDER [None]
  - BRAIN NATRIURETIC PEPTIDE INCREASED [None]
  - CARDIAC FAILURE CONGESTIVE [None]
  - CONSTIPATION [None]
  - COUGH [None]
  - DIZZINESS [None]
  - DYSPNOEA [None]
  - FATIGUE [None]
  - IMPAIRED HEALING [None]
  - OEDEMA PERIPHERAL [None]
  - ORAL PAIN [None]
  - OSTEONECROSIS [None]
  - POLLAKIURIA [None]
  - PYREXIA [None]
  - RIB FRACTURE [None]
  - TOOTH EXTRACTION [None]
  - TOOTH IMPACTED [None]
